FAERS Safety Report 8511710-9 (Version None)
Quarter: 2012Q3

REPORT INFORMATION
  Report Type: 
  Country: None (occurrence: None)
  Receive Date: 20120710
  Receipt Date: 20120710
  Transmission Date: 20120928
  Serious: Yes (Death, Hospitalization)
  Sender: FDA-Public Use
  Company Number: None

PATIENT
  Sex: Male
  Weight: 90 kg

DRUGS (1)
  1. NEXAVAR [Suspect]
     Indication: HEPATIC NEOPLASM MALIGNANT
     Dosage: UNKNOWN DOCUMENTED AS 50MG DAILY PO
     Route: 048
     Dates: start: 20120704

REACTIONS (14)
  - HYPERKALAEMIA [None]
  - CATHETER SITE HAEMORRHAGE [None]
  - ABDOMINAL DISCOMFORT [None]
  - MOUTH HAEMORRHAGE [None]
  - SINUS TACHYCARDIA [None]
  - ACTIVATED PARTIAL THROMBOPLASTIN TIME PROLONGED [None]
  - DYSURIA [None]
  - CONTINUOUS HAEMODIAFILTRATION [None]
  - COAGULOPATHY [None]
  - RECTAL HAEMORRHAGE [None]
  - INTERNATIONAL NORMALISED RATIO INCREASED [None]
  - CARDIAC ARREST [None]
  - METABOLIC ACIDOSIS [None]
  - PROTHROMBIN TIME PROLONGED [None]
